FAERS Safety Report 5978865-1 (Version None)
Quarter: 2008Q4

REPORT INFORMATION
  Report Type: 
  Country: None (occurrence: None)
  Receive Date: 20081126
  Receipt Date: 20081113
  Transmission Date: 20090506
  Serious: Yes (Hospitalization, Other)
  Sender: FDA-Public Use
  Company Number: 100#08#2008-05813

PATIENT
  Age: 48 Year
  Sex: Male

DRUGS (5)
  1. QUETIAPINE FUMARATE [Suspect]
     Indication: DRUG USE FOR UNKNOWN INDICATION
     Dosage: 100 MG DAILY
  2. CLONAZEPAM [Suspect]
     Indication: ANXIETY
     Dosage: 2 MG, AFTER
  3. CLONAZEPAM [Suspect]
     Indication: PROPHYLAXIS
     Dosage: 2 MG, AFTER
  4. BROMAZEPAM [Concomitant]
  5. VITAMIN E [Concomitant]

REACTIONS (8)
  - ALCOHOL ABUSE [None]
  - ANXIETY [None]
  - DISTURBANCE IN SOCIAL BEHAVIOUR [None]
  - DRUG ABUSE [None]
  - IRRITABILITY [None]
  - SLEEP DISORDER [None]
  - TREMOR [None]
  - WITHDRAWAL SYNDROME [None]
